FAERS Safety Report 8285880-4 (Version None)
Quarter: 2012Q2

REPORT INFORMATION
  Report Type: 
  Country: None (occurrence: None)
  Receive Date: 20120413
  Receipt Date: 20120404
  Transmission Date: 20120825
  Serious: Yes (Hospitalization)
  Sender: FDA-Public Use
  Company Number: IT-BAYER-2012-033033

PATIENT
  Age: 44 Year
  Sex: Female

DRUGS (4)
  1. BARBITURATES [Suspect]
     Indication: INTENTIONAL OVERDOSE
     Dosage: 5 DF, ONCE
     Route: 048
     Dates: start: 20120304, end: 20120304
  2. ASPIRIN [Suspect]
     Indication: INTENTIONAL OVERDOSE
     Dosage: 5000 MG, ONCE (10 TABLETS)
     Route: 048
     Dates: start: 20120304, end: 20120304
  3. ALCOHOL [Concomitant]
  4. LORAZEPAM [Suspect]
     Indication: INTENTIONAL OVERDOSE
     Dosage: 50 MG, ONCE (20 TABLETS)
     Route: 048
     Dates: start: 20120304, end: 20120304

REACTIONS (1)
  - SOPOR [None]
